FAERS Safety Report 10698945 (Version 1)
Quarter: 2015Q1

REPORT INFORMATION
  Report Type: Report from Study
  Country: BE (occurrence: BE)
  Receive Date: 20150108
  Receipt Date: 20150108
  Transmission Date: 20150721
  Serious: Yes (Hospitalization)
  Sender: FDA-Public Use
  Company Number: BE-ABBVIE-15K-013-1328870-00

PATIENT
  Age: 58 Year
  Sex: Female

DRUGS (7)
  1. ZOLPIDEM [Concomitant]
     Active Substance: ZOLPIDEM\ZOLPIDEM TARTRATE
     Indication: PRODUCT USED FOR UNKNOWN INDICATION
  2. HUMIRA [Suspect]
     Active Substance: ADALIMUMAB
     Indication: PSORIATIC ARTHROPATHY
     Route: 065
     Dates: start: 20110318, end: 20140126
  3. CO-BISOPROLOL [Concomitant]
     Dosage: FORM STRENGTH:10MG/25MG
     Dates: start: 201401
  4. ZESTRIL [Concomitant]
     Active Substance: LISINOPRIL
     Indication: PRODUCT USED FOR UNKNOWN INDICATION
     Dates: end: 201401
  5. DOLZAM [Concomitant]
     Indication: PRODUCT USED FOR UNKNOWN INDICATION
  6. PARACETAMOL [Concomitant]
     Active Substance: ACETAMINOPHEN
     Indication: PRODUCT USED FOR UNKNOWN INDICATION
  7. CO-BISOPROLOL [Concomitant]
     Indication: PRODUCT USED FOR UNKNOWN INDICATION
     Dates: end: 201401

REACTIONS (15)
  - Stomatitis [Unknown]
  - Somnolence [Unknown]
  - Pleural effusion [Unknown]
  - Synovitis [Unknown]
  - Spinal osteoarthritis [Unknown]
  - Influenza like illness [Unknown]
  - Anaemia [Unknown]
  - Renal pain [Unknown]
  - Intervertebral disc protrusion [Unknown]
  - Pollakiuria [Unknown]
  - Left ventricular dysfunction [Unknown]
  - Back pain [Unknown]
  - Myalgia [Unknown]
  - Pyelonephritis acute [Recovered/Resolved]
  - Headache [Unknown]

NARRATIVE: CASE EVENT DATE: 20140123
